FAERS Safety Report 5579073-9 (Version None)
Quarter: 2007Q4

REPORT INFORMATION
  Report Type: 
  Country: None (occurrence: None)
  Receive Date: 20071228
  Receipt Date: 20071228
  Transmission Date: 20080405
  Serious: Yes (Other)
  Sender: FDA-Public Use
  Company Number: None

PATIENT
  Age: 28 Year
  Sex: Female
  Weight: 79.3795 kg

DRUGS (1)
  1. WELLBUTRIN SR [Suspect]
     Indication: BIPOLAR DISORDER
     Dosage: 150MG  3XPER DAY PO
     Route: 048

REACTIONS (2)
  - ALOPECIA [None]
  - HEADACHE [None]
